FAERS Safety Report 9773800 (Version 5)
Quarter: 2015Q3

REPORT INFORMATION
  Report Type: Report from Study
  Country: GB (occurrence: GB)
  Receive Date: 20131220
  Receipt Date: 20150903
  Transmission Date: 20151125
  Serious: Yes (Hospitalization, Other)
  Sender: FDA-Public Use
  Company Number: GB-AMGEN-GBRCT2013053592

PATIENT
  Age: 83 Year
  Sex: Female
  Weight: 69 kg

DRUGS (2)
  1. DENOSUMAB [Suspect]
     Active Substance: DENOSUMAB
     Indication: PLASMA CELL MYELOMA
     Dosage: 120 MG, UNK
     Route: 065
     Dates: start: 20130711, end: 20130711
  2. CALCEOS [Concomitant]
     Active Substance: CALCIUM CARBONATE\CHOLECALCIFEROL
     Dosage: 2 UNK, UNK
     Route: 048
     Dates: start: 20130711, end: 20130906

REACTIONS (4)
  - Hypocalcaemia [Recovered/Resolved]
  - Bacterial infection [Recovered/Resolved]
  - Rectal adenocarcinoma [Not Recovered/Not Resolved]
  - Neutropenic sepsis [Recovered/Resolved]

NARRATIVE: CASE EVENT DATE: 20130719
